FAERS Safety Report 4284793-2 (Version None)
Quarter: 2004Q1

REPORT INFORMATION
  Report Type: 
  Country: None (occurrence: None)
  Receive Date: 20040202
  Receipt Date: 20040122
  Transmission Date: 20041129
  Serious: Yes (Death)
  Sender: FDA-Public Use
  Company Number: 03P-056-0238193-00

PATIENT
  Age: 43 Year
  Sex: Male

DRUGS (10)
  1. DEPAKOTE [Suspect]
     Indication: MANIA
     Dosage: PROGRESSIVE INCREASE TO 1500 MG, PER ORAL
     Route: 048
     Dates: start: 20030530, end: 20030601
  2. DEPAKOTE [Suspect]
     Indication: MANIA
     Dosage: PROGRESSIVE INCREASE TO 1500 MG, PER ORAL
     Route: 048
     Dates: start: 20030601
  3. HALOPERIDOL [Suspect]
     Indication: MANIA
     Dosage: 15 + 20 MG, 1 IN 1 D, PER ORAL
     Route: 048
     Dates: start: 20030501, end: 20030601
  4. HALOPERIDOL [Suspect]
     Indication: MANIA
     Dosage: 15 + 20 MG, 1 IN 1 D, PER ORAL
     Route: 048
     Dates: start: 20030601, end: 20030603
  5. HALOPERIDOL [Suspect]
     Indication: MANIA
     Dosage: 15 + 20 MG, 1 IN 1 D, PER ORAL
     Route: 048
     Dates: start: 20030604, end: 20030702
  6. CYAMEMAZINE [Concomitant]
  7. LEVOMEPROMAZINE [Concomitant]
  8. VENLAFAXINE HYDROCHLORIDE [Concomitant]
  9. ALPRAZOLAM [Concomitant]
  10. TROPATEPINE HYDROCHLORIDE [Concomitant]

REACTIONS (3)
  - COMPLETED SUICIDE [None]
  - DEPRESSION [None]
  - DRUG INTERACTION [None]
